FAERS Safety Report 5873604-7 (Version None)
Quarter: 2008Q3

REPORT INFORMATION
  Report Type: 
  Country: None (occurrence: None)
  Receive Date: 20080908
  Receipt Date: 20080829
  Transmission Date: 20090109
  Serious: Yes (Hospitalization)
  Sender: FDA-Public Use
  Company Number: US-AVENTIS-200818008GDDC

PATIENT
  Age: 74 Year
  Sex: Male
  Weight: 131.1 kg

DRUGS (4)
  1. TAXOTERE [Suspect]
     Indication: PROSTATE CANCER
     Route: 042
     Dates: start: 20080729, end: 20080819
  2. PREDNISONE [Suspect]
     Indication: PROSTATE CANCER
     Route: 048
     Dates: start: 20080729, end: 20080822
  3. CODE UNBROKEN [Suspect]
     Indication: PROSTATE CANCER
     Route: 048
     Dates: start: 20080729, end: 20080821
  4. DEXAMETHASONE TAB [Suspect]
     Indication: PREMEDICATION
     Route: 042
     Dates: start: 20080729, end: 20080819

REACTIONS (6)
  - ABDOMINAL PAIN [None]
  - ANOREXIA [None]
  - BLOOD CREATININE INCREASED [None]
  - OEDEMA PERIPHERAL [None]
  - RENAL FAILURE ACUTE [None]
  - SEPSIS [None]
